FAERS Safety Report 5000579-5 (Version None)
Quarter: 2006Q2

REPORT INFORMATION
  Report Type: 
  Country: None (occurrence: None)
  Receive Date: 20060512
  Receipt Date: 20060504
  Transmission Date: 20061013
  Serious: Yes (Hospitalization)
  Sender: FDA-Public Use
  Company Number: US-JNJFOC-20060501267

PATIENT
  Sex: Female

DRUGS (18)
  1. REMICADE [Suspect]
     Indication: RHEUMATOID ARTHRITIS
     Route: 042
  2. ALBUTEROL SULFATE AUTOHALER [Concomitant]
  3. ASPIRIN [Concomitant]
  4. BUMEX [Concomitant]
  5. DIGOXIN [Concomitant]
  6. METHOTREXATE [Concomitant]
  7. PEPCID [Concomitant]
  8. POTASSIUM [Concomitant]
  9. PREDNISONE TAB [Concomitant]
  10. PREMARIN [Concomitant]
  11. ZOLOFT [Concomitant]
  12. COMBIVENT [Concomitant]
     Route: 055
  13. COMBIVENT [Concomitant]
     Route: 055
  14. LIPITOR [Concomitant]
  15. CALCIUM+D [Concomitant]
  16. CALCIUM+D [Concomitant]
  17. SOTALOL HCL [Concomitant]
  18. HYDROCODONE [Concomitant]

REACTIONS (2)
  - CARDIAC FAILURE CONGESTIVE [None]
  - RENAL ARTERY STENOSIS [None]
